FAERS Safety Report 6973879-7 (Version None)
Quarter: 2010Q3

REPORT INFORMATION
  Report Type: 
  Country: None (occurrence: None)
  Receive Date: 20100909
  Receipt Date: 20100907
  Transmission Date: 20110219
  Serious: Yes (Other)
  Sender: FDA-Public Use
  Company Number: B0673683A

PATIENT
  Sex: Female

DRUGS (9)
  1. ALKERAN [Suspect]
     Indication: PRODUCT USED FOR UNKNOWN INDICATION
     Dosage: 12MG PER DAY
     Route: 065
  2. MEDROL [Concomitant]
  3. EUTHYROX [Concomitant]
  4. CONTROLOC [Concomitant]
  5. DAROB MITE [Concomitant]
     Dosage: 80MG PER DAY
  6. ALLOPURINOL [Concomitant]
     Dosage: 1TAB PER DAY
  7. ZOLPIDEM [Concomitant]
  8. EPREX [Concomitant]
     Dosage: 5U WEEKLY
     Route: 058
  9. ZOMETA [Concomitant]

REACTIONS (2)
  - LEUKOPENIA [None]
  - OVERDOSE [None]
